FAERS Safety Report 15438982 (Version 1)
Quarter: 2018Q3

REPORT INFORMATION
  Report Type: Spontaneous
  Country: US (occurrence: US)
  Receive Date: 20180928
  Receipt Date: 20180928
  Transmission Date: 20181010
  Serious: No
  Sender: FDA-Public Use
  Company Number: US-PFIZER INC-2018345225

PATIENT
  Age: 49 Year
  Sex: Male

DRUGS (17)
  1. RAPAMUNE [Suspect]
     Active Substance: SIROLIMUS
     Indication: GRAFT VERSUS HOST DISEASE
     Dosage: 0.5 MG, DAILY
     Route: 048
  2. MICRO?K [Concomitant]
     Active Substance: POTASSIUM CHLORIDE
     Dosage: 10 MEQ, UNK
     Route: 048
  3. MEPRON [ATOVAQUONE] [Concomitant]
     Dosage: 750 MG, DAILY
     Route: 048
  4. REMERON [Concomitant]
     Active Substance: MIRTAZAPINE
     Dosage: 15 MG, 1X/DAY
     Route: 048
  5. AMOXIL [Concomitant]
     Active Substance: AMOXICILLIN
     Dosage: 200 MG, UNK
  6. RAPAMUNE [Suspect]
     Active Substance: SIROLIMUS
     Indication: ACUTE MYELOID LEUKAEMIA
  7. ZOVIRAX [Concomitant]
     Active Substance: ACYCLOVIR
     Dosage: 400 MG, DAILY
     Route: 048
  8. NORCO [Concomitant]
     Active Substance: ACETAMINOPHEN\HYDROCODONE BITARTRATE
     Indication: PAIN
     Dosage: [HYDROCODONE 5 MG/ACETAMINOPHEN 325 MG]
     Route: 048
  9. CLARITINE [Concomitant]
     Active Substance: LORATADINE
     Dosage: 10 MG, DAILY
     Route: 048
  10. LOPRESSOR [Concomitant]
     Active Substance: METOPROLOL TARTRATE
     Dosage: 25 MG, UNK
  11. PROTONIX [PANTOPRAZOLE SODIUM SESQUIHYDRATE] [Concomitant]
     Dosage: 40 MG, UNK
  12. NOXAFIL [Concomitant]
     Active Substance: POSACONAZOLE
     Dosage: 100 MG, 1X/DAY
     Route: 048
  13. MYCOSTATIN [Concomitant]
     Active Substance: NYSTATIN
     Dosage: 5 ML, 4X/DAY
  14. CARAFATE [Concomitant]
     Active Substance: SUCRALFATE
     Dosage: 1 G, UNK
     Route: 048
  15. VITAMIN D3 [Concomitant]
     Active Substance: CHOLECALCIFEROL
     Dosage: 1000 IU, DAILY
     Route: 048
  16. MEPRON [ATOVAQUONE] [Concomitant]
     Dosage: 750 MG, 2X/DAY
     Route: 048
  17. DELTASONE [PREDNISONE] [Concomitant]
     Dosage: 7.5 MG, DAILY
     Route: 048

REACTIONS (1)
  - Drug ineffective for unapproved indication [Unknown]
